FAERS Safety Report 4580936-1 (Version None)
Quarter: 2005Q1

REPORT INFORMATION
  Report Type: 
  Country: None (occurrence: None)
  Receive Date: 20050214
  Receipt Date: 20040625
  Transmission Date: 20050727
  Serious: Yes (Other)
  Sender: FDA-Public Use
  Company Number: US-GLAXOSMITHKLINE-A0516450A

PATIENT
  Age: 39 Year
  Sex: Female

DRUGS (4)
  1. LAMICTAL [Suspect]
     Indication: BIPOLAR DISORDER
     Route: 048
     Dates: start: 20040601, end: 20040608
  2. NO CONCURRENT MEDICATION [Concomitant]
  3. EFFEXOR XR [Concomitant]
     Indication: DEPRESSION
     Dosage: 225MG PER DAY
     Route: 048
     Dates: end: 20040601
  4. SYNTHROID [Concomitant]
     Indication: THYROID DISORDER
     Dosage: .1MG PER DAY
     Route: 048

REACTIONS (12)
  - ASTHENIA [None]
  - BLISTER [None]
  - DERMATITIS EXFOLIATIVE [None]
  - DIZZINESS [None]
  - HEADACHE [None]
  - HYPERSENSITIVITY [None]
  - LACRIMATION INCREASED [None]
  - LIP DRY [None]
  - PYREXIA [None]
  - RASH GENERALISED [None]
  - SKIN DISORDER [None]
  - STEVENS-JOHNSON SYNDROME [None]
